FAERS Safety Report 10935021 (Version 1)
Quarter: 2015Q1

REPORT INFORMATION
  Report Type: Spontaneous
  Country: US (occurrence: US)
  Receive Date: 20150320
  Receipt Date: 20150320
  Transmission Date: 20150721
  Serious: No
  Sender: FDA-Public Use
  Company Number: US-GALDERMA-US14003029

PATIENT
  Age: 53 Year
  Sex: Female

DRUGS (9)
  1. PETER THOMAS ROTH CLEANSER [Concomitant]
     Indication: THERAPEUTIC SKIN CARE TOPICAL
     Route: 061
  2. LIPITOR [Concomitant]
     Active Substance: ATORVASTATIN CALCIUM
     Indication: BLOOD CHOLESTEROL
     Dosage: 20 MG
     Route: 048
  3. CALCIUM [Suspect]
     Active Substance: CALCIUM
  4. DERMATOLOGICA MOISTURIZER [Concomitant]
     Route: 061
  5. ZANTAC [Concomitant]
     Active Substance: RANITIDINE HYDROCHLORIDE
     Dosage: 150 MG
  6. VECTICAL [Suspect]
     Active Substance: CALCITRIOL
     Indication: PSORIASIS
     Route: 061
     Dates: start: 20140813
  7. PETER THOMAS ROTH SCRUB [Concomitant]
     Indication: THERAPEUTIC SKIN CARE TOPICAL
     Route: 061
  8. ALGENIST MOISTURIZER [Concomitant]
     Route: 061
  9. MULTI VITAMIN [Concomitant]
     Active Substance: VITAMINS

REACTIONS (2)
  - Erythema [Recovered/Resolved]
  - Psoriasis [Recovered/Resolved]

NARRATIVE: CASE EVENT DATE: 201406
